FAERS Safety Report 9959364 (Version 1)
Quarter: 2014Q1

REPORT INFORMATION
  Report Type: Spontaneous
  Country: US (occurrence: None)
  Receive Date: 20140228
  Receipt Date: 20140228
  Transmission Date: 20141002
  Serious: Yes (Other)
  Sender: FDA-Public Use
  Company Number: None

PATIENT
  Age: 62 Year
  Sex: Female

DRUGS (1)
  1. LATANOPROST [Suspect]
     Indication: GLAUCOMA
     Dosage: INSTILL ONE DROP IN EACH EYE AT BEDTIME
     Route: 031
     Dates: start: 20140215, end: 20140217

REACTIONS (2)
  - Eye irritation [None]
  - Product quality issue [None]
